FAERS Safety Report 5378367-X (Version None)
Quarter: 2007Q3

REPORT INFORMATION
  Report Type: 
  Country: None (occurrence: None)
  Receive Date: 20070702
  Receipt Date: 20070702
  Transmission Date: 20080115
  Serious: Yes (Hospitalization)
  Sender: FDA-Public Use
  Company Number: None

PATIENT
  Sex: Male
  Weight: 114 kg

DRUGS (1)
  1. TAXOTERE [Suspect]
     Dosage: 163 MG
     Dates: end: 20070612

REACTIONS (3)
  - BACTERIAL INFECTION [None]
  - CULTURE URINE POSITIVE [None]
  - GASTROINTESTINAL HAEMORRHAGE [None]
